FAERS Safety Report 6142489-6 (Version None)
Quarter: 2009Q2

REPORT INFORMATION
  Report Type: 
  Country: None (occurrence: None)
  Receive Date: 20090401
  Receipt Date: 20090401
  Transmission Date: 20091009
  Serious: Yes (Hospitalization)
  Sender: FDA-Public Use
  Company Number: None

PATIENT
  Age: 84 Year
  Sex: Female
  Weight: 62.1428 kg

DRUGS (1)
  1. AMBIEN [Suspect]
     Indication: INSOMNIA
     Dosage: 5 MG X 1 HS
     Dates: start: 20090325

REACTIONS (2)
  - CONFUSIONAL STATE [None]
  - FALL [None]
